FAERS Safety Report 5311720-9 (Version None)
Quarter: 2007Q2

REPORT INFORMATION
  Report Type: 
  Country: None (occurrence: None)
  Receive Date: 20070426
  Receipt Date: 20070426
  Transmission Date: 20071010
  Serious: No
  Sender: FDA-Public Use
  Company Number: None

PATIENT
  Age: 31 Year
  Sex: Female

DRUGS (4)
  1. INFLIXIMAB [Suspect]
     Indication: RHEUMATOID ARTHRITIS
     Dosage: 400MG   IV
     Route: 042
     Dates: start: 20061117, end: 20061117
  2. DIPHENHYDRAMINE HCL [Concomitant]
  3. ACETAMINOPHEN [Concomitant]
  4. METHYLPREDNISOLONE 16MG TAB [Concomitant]

REACTIONS (11)
  - BACK PAIN [None]
  - CHEST DISCOMFORT [None]
  - FLANK PAIN [None]
  - FLUSHING [None]
  - HEART RATE INCREASED [None]
  - MALAISE [None]
  - NAUSEA [None]
  - OEDEMA PERIPHERAL [None]
  - PRURITUS [None]
  - THROAT TIGHTNESS [None]
  - VOMITING [None]
